FAERS Safety Report 26057025 (Version 1)
Quarter: 2025Q4

REPORT INFORMATION
  Report Type: Spontaneous
  Country: US (occurrence: US)
  Receive Date: 20251118
  Receipt Date: 20251118
  Transmission Date: 20260118
  Serious: No
  Sender: AMNEAL
  Company Number: US-AMNEAL PHARMACEUTICALS-2025-AMRX-01874

PATIENT

DRUGS (1)
  1. ISOTRETINOIN [Suspect]
     Active Substance: ISOTRETINOIN
     Indication: Product used for unknown indication
     Dosage: 1 CAPSULES (40 MILLIGRAM), DAILY
     Route: 065

REACTIONS (4)
  - Ear haemorrhage [Unknown]
  - Skin haemorrhage [Unknown]
  - Dry skin [Unknown]
  - Intentional dose omission [Unknown]
